FAERS Safety Report 6210237-7 (Version None)
Quarter: 2009Q2

REPORT INFORMATION
  Report Type: 
  Country: None (occurrence: None)
  Receive Date: 20090601
  Receipt Date: 20090528
  Transmission Date: 20091009
  Serious: Yes (Hospitalization)
  Sender: FDA-Public Use
  Company Number: US-BRISTOL-MYERS SQUIBB COMPANY-14640379

PATIENT
  Age: 60 Year
  Sex: Female
  Weight: 59 kg

DRUGS (3)
  1. ABILIFY [Suspect]
     Indication: HALLUCINATION, AUDITORY
     Dosage: INITIALLY AT LOW DOSE
  2. LORAZEPAM [Concomitant]
  3. LITHIUM [Concomitant]

REACTIONS (3)
  - DYSGRAPHIA [None]
  - DYSPHASIA [None]
  - FEELING ABNORMAL [None]
